FAERS Safety Report 9838270 (Version 2)
Quarter: 2014Q2

REPORT INFORMATION
  Report Type: Spontaneous
  Country: US (occurrence: None)
  Receive Date: 20131205
  Receipt Date: 20140416
  Transmission Date: 20141212
  Serious: No
  Sender: FDA-Public Use
  Company Number: 163-POMAL-13100804

PATIENT
  Age: 71 Year
  Sex: Male
  Weight: 94.53 kg

DRUGS (16)
  1. POMALYST [Suspect]
     Indication: PLASMA CELL MYELOMA
     Dosage: 1 IN 1 D
     Route: 048
     Dates: start: 20130617, end: 20130622
  2. ABILIFY (ARIPIPRAZOLE) [Concomitant]
  3. ALFUZOSIN HCL (ALFUZOSIN HYDROCHLORIDE) [Concomitant]
  4. ASPIRIN (ACETYLSALICYLIC ACID) [Concomitant]
  5. CALCIUM + VITAMIN D (LEKOVIT CA) [Concomitant]
  6. CELEBREX (CELEOXIB) [Concomitant]
  7. FLUDROCORTISONE ACETATE [Concomitant]
  8. IRON [Concomitant]
  9. LEVOTHYROXINE SODIUM [Concomitant]
  10. MULTIVITAMINS [Concomitant]
  11. OXYCODONE HCL (OXYCODONE HYDROCHLORIDE) [Concomitant]
  12. PENCILLIN V POTASSIUM (PHENOXYMETHYLPENICILLIN POTASSIUM) [Concomitant]
  13. SEROQUEL (QUETIAPINE FUMARATE) [Concomitant]
  14. SIMVASTATIN [Concomitant]
  15. TRILEPTAL (OXCARBAZEPINE) [Concomitant]
  16. DEXAMETHASONE [Concomitant]

REACTIONS (2)
  - Skin exfoliation [None]
  - Performance status decreased [None]
